FAERS Safety Report 7512921-1 (Version None)
Quarter: 2011Q2

REPORT INFORMATION
  Report Type: 
  Country: None (occurrence: None)
  Receive Date: 20110531
  Receipt Date: 20101122
  Transmission Date: 20111010
  Serious: No
  Sender: FDA-Public Use
  Company Number: US-NOVEN-ALL1-2010-06125

PATIENT
  Sex: Female
  Weight: 85.714 kg

DRUGS (1)
  1. DAYTRANA [Suspect]
     Dosage: UNK MG, 1X/DAY:QD
     Route: 062
     Dates: start: 20100201, end: 20100301

REACTIONS (2)
  - APPLICATION SITE ERYTHEMA [None]
  - OFF LABEL USE [None]
